FAERS Safety Report 15729988 (Version 3)
Quarter: 2019Q1

REPORT INFORMATION
  Report Type: Spontaneous
  Country: JP (occurrence: JP)
  Receive Date: 20181217
  Receipt Date: 20190211
  Transmission Date: 20190417
  Serious: Yes (Hospitalization)
  Sender: FDA-Public Use
  Company Number: JP-JNJFOC-20181213767

PATIENT
  Age: 67 Year
  Sex: Female
  Weight: 52.6 kg

DRUGS (3)
  1. YONDELIS [Suspect]
     Active Substance: TRABECTEDIN
     Indication: EXTRASKELETAL MYXOID CHONDROSARCOMA
     Route: 041
     Dates: start: 20181105
  2. FAMOTIDINE. [Concomitant]
     Active Substance: FAMOTIDINE
     Indication: GASTRITIS
     Route: 048
     Dates: start: 20181029
  3. YONDELIS [Suspect]
     Active Substance: TRABECTEDIN
     Indication: EXTRASKELETAL MYXOID CHONDROSARCOMA
     Dosage: A 24-HOUR INFUSION
     Route: 041
     Dates: start: 20181015

REACTIONS (1)
  - Colitis ischaemic [Recovered/Resolved]

NARRATIVE: CASE EVENT DATE: 20181116
